FAERS Safety Report 10944235 (Version 3)
Quarter: 2015Q4

REPORT INFORMATION
  Report Type: Report from Study
  Country: GT (occurrence: GT)
  Receive Date: 20150323
  Receipt Date: 20151117
  Transmission Date: 20160304
  Serious: Yes (Hospitalization, Disabling)
  Sender: FDA-Public Use
  Company Number: GT-ROCHE-1554465

PATIENT
  Sex: Male
  Weight: 99.8 kg

DRUGS (2)
  1. RANIBIZUMAB [Suspect]
     Active Substance: RANIBIZUMAB
     Indication: AGE-RELATED MACULAR DEGENERATION
     Dosage: DOSE OF 5 OT (UNSPECIFIED UNITS)
     Route: 050
     Dates: start: 20140926
  2. RANIBIZUMAB [Suspect]
     Active Substance: RANIBIZUMAB
     Dosage: DOSE OF 5 OT (UNSPECIFIED UNITS)
     Route: 050
     Dates: start: 20140209

REACTIONS (2)
  - Weight decreased [Unknown]
  - Myocardial infarction [Recovered/Resolved]
